FAERS Safety Report 9016810 (Version 1)
Quarter: 2013Q1

REPORT INFORMATION
  Report Type: Spontaneous
  Country: US (occurrence: US)
  Receive Date: 20130117
  Receipt Date: 20130117
  Transmission Date: 20140127
  Serious: Yes (Other)
  Sender: FDA-Public Use
  Company Number: US-JNJCP-30000142176

PATIENT
  Sex: Female

DRUGS (5)
  1. NTG [Suspect]
     Indication: PRODUCT USED FOR UNKNOWN INDICATION
     Route: 061
  2. NO DRUG NAME [Concomitant]
  3. NO DRUG NAME [Concomitant]
  4. NTG HEALTHY SKIN COMPACT FNDTN SPF55 USA NTHSCFUS [Suspect]
     Indication: PRODUCT USED FOR UNKNOWN INDICATION
     Route: 061
  5. NO DRUG NAME [Concomitant]

REACTIONS (3)
  - Application site erythema [Unknown]
  - Application site pain [Unknown]
  - Application site reaction [Unknown]
